FAERS Safety Report 4594251-3 (Version None)
Quarter: 2005Q1

REPORT INFORMATION
  Report Type: 
  Country: None (occurrence: None)
  Receive Date: 20050301
  Receipt Date: 20040817
  Transmission Date: 20050727
  Serious: No
  Sender: FDA-Public Use
  Company Number: US-GLAXOSMITHKLINE-A0522477A

PATIENT
  Age: 46 Year
  Sex: Female
  Weight: 110.5 kg

DRUGS (1)
  1. VALTREX [Suspect]
     Dosage: 1000MG THREE TIMES PER DAY
     Route: 048
     Dates: start: 20040816, end: 20040817

REACTIONS (2)
  - GENERALISED OEDEMA [None]
  - OEDEMA PERIPHERAL [None]
